FAERS Safety Report 7519110-5 (Version None)
Quarter: 2011Q2

REPORT INFORMATION
  Report Type: 
  Country: None (occurrence: None)
  Receive Date: 20110602
  Receipt Date: 20110519
  Transmission Date: 20111010
  Serious: Yes (Hospitalization)
  Sender: FDA-Public Use
  Company Number: PHHY2011CN35180

PATIENT
  Age: 56 Year
  Sex: Female
  Weight: 51 kg

DRUGS (9)
  1. DANHONG INJECTION [Concomitant]
     Dosage: 30 ML, QD
     Dates: start: 20110416
  2. ZOLEDRONIC ACID (RECLAST) [Suspect]
     Indication: OSTEOPOROSIS
     Dosage: 5 MG/100ML
     Route: 042
     Dates: start: 20110415
  3. DICLOFENAC SODIUM [Suspect]
     Indication: ARTHRALGIA
     Dosage: 75 MG, QD
     Dates: start: 20110416
  4. DANHONG INJECTION [Concomitant]
     Indication: PULMONARY VASCULAR DISORDER
     Dosage: UNK
     Dates: start: 20110412, end: 20110414
  5. CALTRATE +D [Concomitant]
     Indication: CALCIUM DEFICIENCY
     Dosage: UNK
     Route: 048
  6. CERVUS AND CUCUMIS [Concomitant]
     Dosage: 24 MG, QD
     Dates: start: 20110416
  7. CERVUS AND CUCUMIS [Concomitant]
     Indication: OSTEOPOROSIS
     Dosage: 24 MG, QD
     Dates: start: 20110412, end: 20110414
  8. DIOVAN [Concomitant]
     Indication: HYPERTENSION
     Dosage: 80 MG, QD
     Route: 048
     Dates: start: 20110412
  9. BISOPROLOL FUMARATE [Concomitant]
     Indication: HYPERTENSION
     Dosage: 5 MG, QD
     Route: 048
     Dates: start: 20110412

REACTIONS (6)
  - ASPARTATE AMINOTRANSFERASE INCREASED [None]
  - LIVER INJURY [None]
  - MYALGIA [None]
  - TRANSAMINASES INCREASED [None]
  - ARTHRALGIA [None]
  - ALANINE AMINOTRANSFERASE INCREASED [None]
